FAERS Safety Report 8552403-1 (Version None)
Quarter: 2012Q3

REPORT INFORMATION
  Report Type: 
  Country: None (occurrence: None)
  Receive Date: 20120731
  Receipt Date: 20120719
  Transmission Date: 20120928
  Serious: No
  Sender: FDA-Public Use
  Company Number: ZA-JNJFOC-20120712161

PATIENT
  Sex: Female

DRUGS (1)
  1. DURAGESIC-100 [Suspect]
     Indication: PRODUCT USED FOR UNKNOWN INDICATION
     Route: 062

REACTIONS (4)
  - EYE SWELLING [None]
  - WRONG TECHNIQUE IN DRUG USAGE PROCESS [None]
  - JOINT SWELLING [None]
  - PRODUCT QUALITY ISSUE [None]
